FAERS Safety Report 8484085-1 (Version None)
Quarter: 2012Q3

REPORT INFORMATION
  Report Type: 
  Country: None (occurrence: None)
  Receive Date: 20120703
  Receipt Date: 20120627
  Transmission Date: 20120928
  Serious: Yes (Death, Other)
  Sender: FDA-Public Use
  Company Number: JP-ELI_LILLY_AND_COMPANY-JP201102001022

PATIENT
  Age: 69 Year
  Sex: Female

DRUGS (1)
  1. GEMZAR [Suspect]
     Indication: PANCREATIC CARCINOMA STAGE IV
     Dosage: UNK, UNKNOWN
     Route: 042
     Dates: start: 20080801

REACTIONS (8)
  - LEUKOPENIA [None]
  - LARGE INTESTINAL HAEMORRHAGE [None]
  - INJECTION SITE REACTION [None]
  - THROMBOCYTOPENIA [None]
  - LYMPHOPENIA [None]
  - ILEUS [None]
  - NEOPLASM PROGRESSION [None]
  - NEUTROPENIA [None]
